FAERS Safety Report 6302518-3 (Version None)
Quarter: 2009Q3

REPORT INFORMATION
  Report Type: 
  Country: None (occurrence: None)
  Receive Date: 20090810
  Receipt Date: 20090417
  Transmission Date: 20100115
  Serious: Yes (Hospitalization)
  Sender: FDA-Public Use
  Company Number: PHHO2009US05100

PATIENT
  Sex: Female
  Weight: 37.188 kg

DRUGS (8)
  1. SOM230 SOM+INJ [Suspect]
     Indication: METASTATIC CARCINOID TUMOUR
     Dosage: 600MCG
     Route: 058
     Dates: start: 20090205
  2. CERTICAN [Suspect]
     Indication: METASTATIC CARCINOID TUMOUR
     Dosage: 5MG
     Route: 048
     Dates: start: 20090205
  3. COMPAZINE [Concomitant]
  4. LOMOTIL [Concomitant]
  5. DETROL [Concomitant]
  6. LORAZEPAM [Concomitant]
  7. MIACALCIN [Concomitant]
  8. REGLAN [Concomitant]

REACTIONS (3)
  - PYREXIA [None]
  - SMALL INTESTINAL OBSTRUCTION [None]
  - URINARY TRACT INFECTION [None]
